FAERS Safety Report 9094973 (Version 1)
Quarter: 2013Q1

REPORT INFORMATION
  Report Type: Spontaneous
  Country: US (occurrence: None)
  Receive Date: 20130215
  Receipt Date: 20130215
  Transmission Date: 20140127
  Serious: No
  Sender: FDA-Public Use
  Company Number: None

PATIENT
  Age: 4 Year
  Sex: Male

DRUGS (2)
  1. PEGASPARGASE [Suspect]
     Dosage: 1900 UNITS, ONE TIME DOSE
     Route: 042
  2. PIPERACILLIN, TAZOBACTAM [Suspect]
     Dosage: EVERY 8 HOURS
     Route: 042

REACTIONS (3)
  - Abdominal pain [None]
  - Pancreatitis [None]
  - Febrile neutropenia [None]
